FAERS Safety Report 7898703 (Version 4)
Quarter: 2014Q2

REPORT INFORMATION
  Report Type: Report from Study
  Country: US (occurrence: US)
  Receive Date: 20110414
  Receipt Date: 20140404
  Transmission Date: 20141212
  Serious: Yes (Hospitalization, Other)
  Sender: FDA-Public Use
  Company Number: US-ELI_LILLY_AND_COMPANY-US201104001632

PATIENT
  Age: 63 Year
  Sex: Female

DRUGS (6)
  1. TERIPARATIDE [Suspect]
     Indication: OSTEOPOROSIS
     Dosage: 20 UG, QD
     Route: 058
     Dates: start: 20110315, end: 201303
  2. HUMALOG LISPRO [Suspect]
     Indication: DIABETES MELLITUS
     Dosage: UNK, TID
     Route: 058
  3. LANTUS [Concomitant]
     Indication: PRODUCT USED FOR UNKNOWN INDICATION
     Dosage: 30 U, EACH EVENING
     Route: 065
  4. LANTUS [Concomitant]
     Dosage: 13 U, EACH EVENING
     Route: 065
  5. CALCIUM [Concomitant]
     Indication: PRODUCT USED FOR UNKNOWN INDICATION
     Route: 065
  6. VITAMIN D [Concomitant]
     Indication: PRODUCT USED FOR UNKNOWN INDICATION
     Route: 065

REACTIONS (14)
  - Road traffic accident [Unknown]
  - Upper limb fracture [Unknown]
  - Hand fracture [Unknown]
  - Lower limb fracture [Unknown]
  - Foot fracture [Unknown]
  - Wrist fracture [Unknown]
  - Fall [Unknown]
  - Spinal fracture [Unknown]
  - Blindness [Unknown]
  - Fall [Unknown]
  - Nasopharyngitis [Unknown]
  - Impaired healing [Unknown]
  - Mobility decreased [Unknown]
  - Treatment noncompliance [Unknown]
